FAERS Safety Report 11360972 (Version 2)
Quarter: 2015Q4

REPORT INFORMATION
  Report Type: Spontaneous
  Country: US (occurrence: US)
  Receive Date: 20150810
  Receipt Date: 20151109
  Transmission Date: 20160304
  Serious: Yes (Hospitalization, Other)
  Sender: FDA-Public Use
  Company Number: US-PFIZER INC-2015259702

PATIENT
  Age: 34 Year
  Sex: Male

DRUGS (19)
  1. DEPO-TESTOSTERONE [Suspect]
     Active Substance: TESTOSTERONE CYPIONATE
     Indication: MOOD SWINGS
  2. DEPO-TESTOSTERONE [Suspect]
     Active Substance: TESTOSTERONE CYPIONATE
     Indication: APATHY
  3. DEPO-TESTOSTERONE [Suspect]
     Active Substance: TESTOSTERONE CYPIONATE
     Indication: NEOPLASM PROPHYLAXIS
  4. TESTOSTERONE CIPIONATE [Suspect]
     Active Substance: TESTOSTERONE
     Indication: MOOD SWINGS
  5. TESTOSTERONE CIPIONATE [Suspect]
     Active Substance: TESTOSTERONE
     Indication: NEOPLASM PROPHYLAXIS
  6. TESTRED [Suspect]
     Active Substance: METHYLTESTOSTERONE
     Indication: NEOPLASM PROPHYLAXIS
  7. TESTOSTERONE CIPIONATE [Suspect]
     Active Substance: TESTOSTERONE
     Indication: FATIGUE
  8. TESTRED [Suspect]
     Active Substance: METHYLTESTOSTERONE
     Indication: FATIGUE
  9. DEPO-TESTOSTERONE [Suspect]
     Active Substance: TESTOSTERONE CYPIONATE
     Indication: BLOOD TESTOSTERONE INCREASED
     Dosage: UNK, (200 MG OIL INJECTION 1.5 ML) WEEKLY
     Route: 058
     Dates: start: 20041019, end: 20081022
  10. TESTOSTERONE CIPIONATE [Suspect]
     Active Substance: TESTOSTERONE
     Indication: APATHY
  11. DEPO-TESTOSTERONE [Suspect]
     Active Substance: TESTOSTERONE CYPIONATE
     Indication: FATIGUE
  12. TESTOSTERONE CIPIONATE [Suspect]
     Active Substance: TESTOSTERONE
     Indication: BLOOD TESTOSTERONE INCREASED
     Dosage: UNK, WEEKLY
     Dates: start: 200501
  13. TESTOSTERONE CIPIONATE [Suspect]
     Active Substance: TESTOSTERONE
     Indication: LETHARGY
  14. TESTRED [Suspect]
     Active Substance: METHYLTESTOSTERONE
     Indication: BLOOD TESTOSTERONE INCREASED
     Dosage: 10 MG, UNK
     Dates: start: 20060906
  15. TESTRED [Suspect]
     Active Substance: METHYLTESTOSTERONE
     Indication: LETHARGY
  16. TESTRED [Suspect]
     Active Substance: METHYLTESTOSTERONE
     Indication: MOOD SWINGS
     Dosage: 20 MG, UNK
     Dates: end: 20061206
  17. DEPO-TESTOSTERONE [Suspect]
     Active Substance: TESTOSTERONE CYPIONATE
     Indication: HORMONE REPLACEMENT THERAPY
     Dosage: UNK
     Dates: start: 2005, end: 201309
  18. DEPO-TESTOSTERONE [Suspect]
     Active Substance: TESTOSTERONE CYPIONATE
     Indication: LETHARGY
  19. TESTRED [Suspect]
     Active Substance: METHYLTESTOSTERONE
     Indication: APATHY

REACTIONS (3)
  - Cerebrovascular accident [Unknown]
  - Hypertension [Not Recovered/Not Resolved]
  - Blindness [Not Recovered/Not Resolved]
